FAERS Safety Report 6313860-4 (Version None)
Quarter: 2009Q3

REPORT INFORMATION
  Report Type: 
  Country: None (occurrence: None)
  Receive Date: 20090818
  Receipt Date: 20090810
  Transmission Date: 20100115
  Serious: Yes (Hospitalization, Other)
  Sender: FDA-Public Use
  Company Number: US-ELI_LILLY_AND_COMPANY-US200908003568

PATIENT
  Sex: Female
  Weight: 116.1 kg

DRUGS (8)
  1. BYETTA [Suspect]
     Indication: TYPE 2 DIABETES MELLITUS
     Dosage: 5 UG, 2/D
     Route: 058
     Dates: start: 20070101, end: 20070101
  2. BYETTA [Suspect]
     Dosage: 10 UG, 2/D
     Route: 058
     Dates: start: 20070101, end: 20080101
  3. BYETTA [Suspect]
     Dosage: 5 UG, 2/D
     Route: 058
     Dates: start: 20090808
  4. METFORMIN HCL [Concomitant]
     Indication: TYPE 2 DIABETES MELLITUS
  5. JANUVIA [Concomitant]
  6. JANUMET [Concomitant]
     Dates: start: 20090801
  7. METHOTREXATE [Concomitant]
  8. FEMARA [Concomitant]
     Indication: BREAST CANCER
     Dosage: 2.5 MG, DAILY (1/D)
     Dates: start: 20090301

REACTIONS (9)
  - BREAST CANCER [None]
  - BREAST DISCOLOURATION [None]
  - BREAST MASS [None]
  - DIARRHOEA [None]
  - EXPIRED DRUG ADMINISTERED [None]
  - HAEMATOMA [None]
  - HOT FLUSH [None]
  - NAUSEA [None]
  - POST PROCEDURAL HAEMORRHAGE [None]
